FAERS Safety Report 5216849-1 (Version None)
Quarter: 2007Q1

REPORT INFORMATION
  Report Type: 
  Country: None (occurrence: None)
  Receive Date: 20070119
  Receipt Date: 20070110
  Transmission Date: 20070707
  Serious: Yes (Death)
  Sender: FDA-Public Use
  Company Number: 2007US000109

PATIENT
  Sex: 0

DRUGS (2)
  1. AMBISOME [Suspect]
  2. AMPHOTERICIN B [Suspect]

REACTIONS (3)
  - CARDIO-RESPIRATORY ARREST [None]
  - DRUG DISPENSING ERROR [None]
  - WRONG DRUG ADMINISTERED [None]
